FAERS Safety Report 21977069 (Version 1)
Quarter: 2023Q1

REPORT INFORMATION
  Report Type: Spontaneous
  Country: DE (occurrence: DE)
  Receive Date: 20230210
  Receipt Date: 20230210
  Transmission Date: 20230418
  Serious: Yes (Hospitalization, Other)
  Sender: FDA-Public Use
  Company Number: None

PATIENT
  Age: 31 Year
  Sex: Male
  Weight: 126 kg

DRUGS (5)
  1. QUETIAPINE [Suspect]
     Active Substance: QUETIAPINE
     Indication: Schizophrenia
     Dosage: EXTENDED-RELEASE TABLETS, 0-0-0-1
     Dates: end: 202301
  2. QUETIAPINE [Suspect]
     Active Substance: QUETIAPINE
     Indication: Schizophrenia
     Dosage: 0-0-0-1, FILM-COATED TABLETS
     Dates: end: 202301
  3. ESOMEPRAZOLE [Concomitant]
     Active Substance: ESOMEPRAZOLE
     Dosage: 1-0-0
  4. PROMETHAZINE [Concomitant]
     Active Substance: PROMETHAZINE HYDROCHLORIDE
  5. HALDOL [Concomitant]
     Active Substance: HALOPERIDOL

REACTIONS (9)
  - Ejection fraction decreased [Not Recovered/Not Resolved]
  - Fatigue [Unknown]
  - Hyperventilation [Recovering/Resolving]
  - Dyspnoea [Unknown]
  - Congestive cardiomyopathy [Not Recovered/Not Resolved]
  - Tachycardia [Unknown]
  - Performance status decreased [Unknown]
  - Cardiac failure [Unknown]
  - Toxicity to various agents [Unknown]

NARRATIVE: CASE EVENT DATE: 20221201
